FAERS Safety Report 5151189-0 (Version None)
Quarter: 2006Q4

REPORT INFORMATION
  Report Type: 
  Country: None (occurrence: None)
  Receive Date: 20061114
  Receipt Date: 20061114
  Transmission Date: 20070319
  Serious: Yes (Hospitalization)
  Sender: FDA-Public Use
  Company Number: None

PATIENT
  Sex: Male
  Weight: 162.3 kg

DRUGS (7)
  1. FLUDARABINE [Suspect]
     Indication: STEM CELL TRANSPLANT
     Dosage: 70MG     ONCE A DAY    IV DRIP
     Route: 041
     Dates: start: 20060628, end: 20060702
  2. CAMPATH [Suspect]
     Indication: STEM CELL TRANSPLANT
     Dosage: 20 MG   ONCE A DAY   IV DRIP
     Route: 041
     Dates: start: 20060628, end: 20060702
  3. MELPHALAN [Suspect]
     Dosage: 400 MG   ONCE A DAY   IV DRIP
     Route: 041
     Dates: start: 20060703, end: 20060703
  4. PEPCID [Concomitant]
  5. ALLOPURINOL [Concomitant]
  6. ZOCOR [Concomitant]
  7. VALTREX [Concomitant]

REACTIONS (1)
  - CULTURE URINE POSITIVE [None]
